FAERS Safety Report 6284977-8 (Version None)
Quarter: 2009Q3

REPORT INFORMATION
  Report Type: 
  Country: None (occurrence: None)
  Receive Date: 20090727
  Receipt Date: 20080722
  Transmission Date: 20100115
  Serious: No
  Sender: FDA-Public Use
  Company Number: US-ABBOTT-08P-163-0465894-00

PATIENT
  Sex: Male

DRUGS (9)
  1. NORVIR [Suspect]
     Indication: HIV INFECTION
     Route: 048
  2. TRUVADA [Concomitant]
     Indication: HIV INFECTION
     Dosage: 200+300 MILLIGRAMS
     Route: 048
  3. DEXTROAMPHETAMINE SULFATE [Concomitant]
     Indication: ATTENTION DEFICIT/HYPERACTIVITY DISORDER
     Dosage: 10 MILLIGRAM SUSTAINED 15MILLIGRAMS AND 5 MILLIGRAMS
     Route: 048
  4. ATAZANAVIR SULFATE [Concomitant]
     Indication: HIV INFECTION
     Route: 048
  5. MIDRID [Concomitant]
     Indication: MIGRAINE
     Dosage: COMBINATION 4 DRUGS
     Route: 048
  6. SUMATRIPTAN SUCCINATE [Concomitant]
     Indication: MIGRAINE
     Route: 048
  7. AXOTAL [Concomitant]
     Indication: MIGRAINE
     Dosage: COMBINATION DRUG
     Route: 048
  8. ALPRAZOLAM [Concomitant]
     Indication: ANXIETY
     Route: 048
  9. VALACYCLOVIR [Concomitant]
     Indication: DRUG USE FOR UNKNOWN INDICATION
     Route: 048

REACTIONS (2)
  - HEADACHE [None]
  - MIGRAINE [None]
